FAERS Safety Report 10101995 (Version 2)
Quarter: 2014Q2

REPORT INFORMATION
  Report Type: Spontaneous
  Country: GB (occurrence: GB)
  Receive Date: 20140424
  Receipt Date: 20140509
  Transmission Date: 20141212
  Serious: Yes (Hospitalization)
  Sender: FDA-Public Use
  Company Number: PHFR2014GB002994

PATIENT
  Age: 41 Year
  Sex: Male

DRUGS (2)
  1. CLOZARIL [Suspect]
     Indication: SCHIZOPHRENIA
     Dosage: UNK
     Route: 048
     Dates: start: 20131212
  2. CLOZARIL [Suspect]
     Dosage: 2.4 G
     Route: 048
     Dates: end: 20140422

REACTIONS (4)
  - Circulatory collapse [Unknown]
  - Overdose [Unknown]
  - White blood cell count increased [Unknown]
  - Neutrophil count increased [Unknown]
